FAERS Safety Report 5165639-7 (Version None)
Quarter: 2006Q4

REPORT INFORMATION
  Report Type: 
  Country: None (occurrence: None)
  Receive Date: 20061122
  Receipt Date: 20061102
  Transmission Date: 20070319
  Serious: Yes (Other)
  Sender: FDA-Public Use
  Company Number: ENT 2006-0144

PATIENT
  Age: 88 Year
  Sex: Female

DRUGS (5)
  1. COMTAN [Suspect]
     Indication: PARKINSON'S DISEASE
     Dosage: 200MG QID ORAL
     Route: 048
     Dates: start: 20060901, end: 20060906
  2. LEVODOPA [Concomitant]
  3. SINEMET [Concomitant]
  4. ENTERIC ASPIRIN [Concomitant]
  5. TRAZODONE HCL [Concomitant]

REACTIONS (3)
  - HALLUCINATION [None]
  - INSOMNIA [None]
  - MEMORY IMPAIRMENT [None]
